FAERS Safety Report 5028922-1 (Version None)
Quarter: 2006Q2

REPORT INFORMATION
  Report Type: 
  Country: None (occurrence: None)
  Receive Date: 20060619
  Receipt Date: 20060614
  Transmission Date: 20061013
  Serious: Yes (Death)
  Sender: FDA-Public Use
  Company Number: JP-JPN-A200602054

PATIENT
  Age: 64 Year
  Sex: Female

DRUGS (3)
  1. PAXIL [Suspect]
     Indication: DYSTHYMIC DISORDER
     Route: 048
     Dates: start: 20010101, end: 20060530
  2. DEPROMEL [Suspect]
     Indication: DYSTHYMIC DISORDER
     Route: 048
     Dates: start: 20010101
  3. LIMAS [Concomitant]
     Indication: DYSTHYMIC DISORDER
     Route: 048
     Dates: start: 20010101

REACTIONS (1)
  - COMPLETED SUICIDE [None]
